FAERS Safety Report 10201151 (Version 5)
Quarter: 2014Q3

REPORT INFORMATION
  Report Type: Report from Study
  Country: JP (occurrence: JP)
  Receive Date: 20140528
  Receipt Date: 20140819
  Transmission Date: 20150326
  Serious: Yes (Hospitalization)
  Sender: FDA-Public Use
  Company Number: JP-PFIZER INC-2014141045

PATIENT
  Age: 67 Year
  Sex: Female
  Weight: 53.4 kg

DRUGS (21)
  1. JZOLOFT [Concomitant]
     Active Substance: SERTRALINE HYDROCHLORIDE
     Dosage: 100 MG, 1X/DAY
     Route: 048
     Dates: start: 20130823, end: 20130905
  2. ZYPREXA [Concomitant]
     Active Substance: OLANZAPINE
     Dosage: UNKNOWN DOSE, 1X/DAY
     Route: 048
  3. LEXOTAN [Concomitant]
     Active Substance: BROMAZEPAM
     Dosage: 2 MG, AS NEEDED
     Route: 048
  4. DEPROMEL [Concomitant]
     Active Substance: FLUVOXAMINE
     Indication: SCHIZOPHRENIA
     Dosage: 50 MG, 1X/DAY
     Route: 048
     Dates: start: 20130809, end: 20130822
  5. DEPROMEL [Concomitant]
     Active Substance: FLUVOXAMINE
     Dosage: 125 MG, 1X/DAY
     Route: 048
     Dates: start: 20130906
  6. MS [Concomitant]
     Indication: RIB FRACTURE
     Dosage: 1 SHEET AS NEEDED
     Route: 062
     Dates: start: 20131115
  7. PURSENNID [Concomitant]
     Active Substance: SENNOSIDES A AND B CALCIUM
     Indication: CONSTIPATION
     Dosage: 24 MG, AS NEEDED
     Route: 048
     Dates: start: 20130523
  8. MAGMITT [Concomitant]
     Active Substance: MAGNESIUM OXIDE
     Dosage: 660 MG, 3X/DAY
     Route: 048
     Dates: start: 20130526
  9. JZOLOFT [Concomitant]
     Active Substance: SERTRALINE HYDROCHLORIDE
     Dosage: 100 MG, 1X/DAY
     Route: 048
  10. CRESTOR [Concomitant]
     Active Substance: ROSUVASTATIN CALCIUM
     Dosage: 5 MG, 1X/DAY
     Route: 048
  11. DEPROMEL [Concomitant]
     Active Substance: FLUVOXAMINE
     Dosage: 100 MG, 2X/DAY
     Route: 048
     Dates: start: 20130823, end: 20130905
  12. COCARL [Concomitant]
     Active Substance: ACETAMINOPHEN
     Indication: RIB FRACTURE
     Dosage: 1200 MG, 3X/DAY
     Route: 048
     Dates: start: 20131007
  13. JZOLOFT [Concomitant]
     Active Substance: SERTRALINE HYDROCHLORIDE
     Dosage: 150 MG, 1X/DAY
     Route: 048
     Dates: end: 20130822
  14. CERCINE [Concomitant]
     Active Substance: DIAZEPAM
     Dosage: 4 MG, 1X/DAY
     Route: 048
  15. WYPAX [Concomitant]
     Active Substance: LORAZEPAM
     Dosage: 0.5 MG, AS NEEDED
     Route: 048
  16. XALKORI [Suspect]
     Active Substance: CRIZOTINIB
     Indication: NON-SMALL CELL LUNG CANCER
     Dosage: 250 MG, 2X/DAY
     Route: 048
     Dates: start: 20130514, end: 20131224
  17. JZOLOFT [Concomitant]
     Active Substance: SERTRALINE HYDROCHLORIDE
     Dosage: 50 MG, 1X/DAY
     Route: 048
     Dates: start: 20130906
  18. CERCINE [Concomitant]
     Active Substance: DIAZEPAM
     Dosage: 5 MG, 1X/DAY
     Route: 048
  19. SENNOSIDES [Concomitant]
     Active Substance: SENNOSIDES
     Dosage: 12 MG, 1X/DAY
     Route: 048
  20. JZOLOFT [Concomitant]
     Active Substance: SERTRALINE HYDROCHLORIDE
     Dosage: 50 MG, 1X/DAY
     Route: 048
  21. CERCINE [Concomitant]
     Active Substance: DIAZEPAM
     Dosage: 2 MG, 1X/DAY
     Route: 048

REACTIONS (2)
  - Deep vein thrombosis [Recovered/Resolved]
  - Pulmonary embolism [Recovered/Resolved]

NARRATIVE: CASE EVENT DATE: 20131209
